FAERS Safety Report 20998210 (Version 15)
Quarter: 2023Q2

REPORT INFORMATION
  Report Type: Report from Study
  Country: DE (occurrence: None)
  Receive Date: 20220623
  Receipt Date: 20230606
  Transmission Date: 20230721
  Serious: Yes (Hospitalization, Disabling)
  Sender: FDA-Public Use
  Company Number: DE-ROCHE-3119380

PATIENT
  Age: 63 Year
  Sex: Male

DRUGS (9)
  1. ATEZOLIZUMAB [Suspect]
     Active Substance: ATEZOLIZUMAB
     Indication: Bile duct cancer
     Dosage: ON 13/JUN/2022, RECEIVED MOST RECENT DOSE OF ATEZOLIZUMAB (840 MG) BEFORE EVENT. HE RECEIVED THE DOS
     Route: 042
     Dates: start: 20220523, end: 20220613
  2. BEVACIZUMAB [Suspect]
     Active Substance: BEVACIZUMAB
     Indication: Bile duct cancer
     Dosage: ON 13/JUN/2022, RECEIVED MOST RECENT DOSE OF BEVACIZUMAB (787 MG) BEFORE EVENT. 10 MG/KG DOSE AS PER
     Route: 042
     Dates: start: 20220523, end: 20220613
  3. LEUCOVORIN [Concomitant]
     Active Substance: LEUCOVORIN
     Indication: Bile duct cancer
     Dosage: D,L RACEMIC FORM, 400 MG/M2
     Route: 042
     Dates: start: 20220523, end: 20220613
  4. FLUOROURACIL [Concomitant]
     Active Substance: FLUOROURACIL
     Indication: Bile duct cancer
     Route: 042
     Dates: start: 20220523, end: 20220613
  5. OXALIPLATIN [Concomitant]
     Active Substance: OXALIPLATIN
     Indication: Bile duct cancer
     Route: 042
     Dates: start: 20220523, end: 20220613
  6. FLUMILEXA [Concomitant]
     Route: 048
  7. ZYPREXA [Concomitant]
     Active Substance: OLANZAPINE
  8. EFENSOL [Concomitant]
  9. ZYRTEC (GERMANY) [Concomitant]

REACTIONS (2)
  - Myasthenia gravis [Not Recovered/Not Resolved]
  - Hepatic encephalopathy [Recovered/Resolved]

NARRATIVE: CASE EVENT DATE: 20220613
